FAERS Safety Report 5607651-7 (Version None)
Quarter: 2008Q1

REPORT INFORMATION
  Report Type: 
  Country: None (occurrence: None)
  Receive Date: 20080125
  Receipt Date: 20080122
  Transmission Date: 20080703
  Serious: Yes (Death, Life-Threatening, Hospitalization, Other)
  Sender: FDA-Public Use
  Company Number: 08012386

PATIENT
  Age: 66 Year
  Sex: Female

DRUGS (2)
  1. PHENYTOIN [Suspect]
     Indication: CONVULSION
     Dosage: 300MG, QD, ORAL
     Route: 048
  2. DEXAMETHASONE TAB [Concomitant]

REACTIONS (7)
  - BRAIN COMPRESSION [None]
  - BRAIN STEM SYNDROME [None]
  - CEREBRAL ISCHAEMIA [None]
  - GLASGOW COMA SCALE ABNORMAL [None]
  - HAEMOGLOBIN DECREASED [None]
  - HAEMORRHAGE INTRACRANIAL [None]
  - THROMBOCYTOPENIA [None]
